FAERS Safety Report 13290474 (Version 5)
Quarter: 2017Q3

REPORT INFORMATION
  Report Type: Spontaneous
  Country: US (occurrence: US)
  Receive Date: 20170303
  Receipt Date: 20170814
  Transmission Date: 20171127
  Serious: Yes (Other)
  Sender: FDA-Public Use
  Company Number: PHEH2017US006475

PATIENT
  Sex: Female
  Weight: 49.43 kg

DRUGS (2)
  1. ZOFRAN [Suspect]
     Active Substance: ONDANSETRON HYDROCHLORIDE
     Indication: VOMITING
     Route: 065
     Dates: start: 199306, end: 1994
  2. ZOFRAN [Suspect]
     Active Substance: ONDANSETRON HYDROCHLORIDE
     Indication: PRODUCT USED FOR UNKNOWN INDICATION
     Route: 048

REACTIONS (9)
  - Pharyngitis [Unknown]
  - Anxiety [Unknown]
  - Product use issue [Unknown]
  - Nephrolithiasis [Unknown]
  - Pain [Unknown]
  - Injury [Unknown]
  - Maternal exposure during pregnancy [Unknown]
  - Ear infection [Unknown]
  - Emotional distress [Unknown]
